FAERS Safety Report 17220556 (Version 1)
Quarter: 2019Q4

REPORT INFORMATION
  Report Type: Report from Study
  Country: US (occurrence: US)
  Receive Date: 20191231
  Receipt Date: 20191231
  Transmission Date: 20200122
  Serious: Yes (Hospitalization, Other)
  Sender: FDA-Public Use
  Company Number: US-GILEAD-2019-0444987

PATIENT
  Age: 88 Year
  Sex: Female

DRUGS (1)
  1. AZTREONAM LYSINE [Suspect]
     Active Substance: AZTREONAM LYSINE
     Indication: BRONCHIECTASIS
     Dosage: 75 MG, TID
     Route: 055
     Dates: start: 20180802

REACTIONS (5)
  - Pneumonia [Recovering/Resolving]
  - Cough [Not Recovered/Not Resolved]
  - Blood calcium decreased [Recovering/Resolving]
  - Visual impairment [Not Recovered/Not Resolved]
  - Off label use [Not Recovered/Not Resolved]

NARRATIVE: CASE EVENT DATE: 20180802
